FAERS Safety Report 10495165 (Version 2)
Quarter: 2016Q2

REPORT INFORMATION
  Report Type: Spontaneous
  Country: US (occurrence: US)
  Receive Date: 20140815
  Receipt Date: 20160525
  Transmission Date: 20160815
  Serious: Yes (Other)
  Sender: FDA-Public Use
  Company Number: ADR-2014-00288

PATIENT
  Age: 39 Year
  Sex: Female

DRUGS (1)
  1. BACLOFEN. [Suspect]
     Active Substance: BACLOFEN
     Dosage: 29.98MCG/DAY
     Route: 037

REACTIONS (12)
  - Urinary tract infection [Unknown]
  - Abasia [Unknown]
  - Nausea [Unknown]
  - Asthenia [Unknown]
  - Implant site extravasation [Unknown]
  - Underdose [Unknown]
  - Rash [Unknown]
  - Pollakiuria [Unknown]
  - Incision site pain [Unknown]
  - Cerebrospinal fluid leakage [Unknown]
  - Post lumbar puncture syndrome [Unknown]
  - No therapeutic response [Unknown]

NARRATIVE: CASE EVENT DATE: 2013
